FAERS Safety Report 9791769 (Version 1)
Quarter: 2014Q1

REPORT INFORMATION
  Report Type: Spontaneous
  Country: US (occurrence: US)
  Receive Date: 20140102
  Receipt Date: 20140102
  Transmission Date: 20141002
  Serious: Yes (Hospitalization)
  Sender: FDA-Public Use
  Company Number: US-TARO PHARMACEUTICALS U.S.A., INC-2013SUN05292

PATIENT
  Age: 58 Year
  Sex: Male

DRUGS (3)
  1. AMIODARONE [Suspect]
     Indication: VENTRICULAR TACHYCARDIA
     Dosage: 400 MG FOUR TIMES A DAY
     Route: 048
  2. AMIODARONE [Suspect]
     Dosage: 200 MG A DAY
     Route: 048
  3. AMIODARONE [Suspect]
     Indication: VENTRICULAR TACHYCARDIA
     Route: 042

REACTIONS (1)
  - Hyponatraemia [Recovered/Resolved]
